FAERS Safety Report 4708045-9 (Version None)
Quarter: 2005Q3

REPORT INFORMATION
  Report Type: 
  Country: None (occurrence: None)
  Receive Date: 20050707
  Receipt Date: 20050623
  Transmission Date: 20060218
  Serious: Yes (Other)
  Sender: FDA-Public Use
  Company Number: JP-JNJFOC-20050601168

PATIENT
  Age: 80 Year
  Sex: Female

DRUGS (1)
  1. TAVANIC [Suspect]

REACTIONS (4)
  - CARDIAC DISORDER [None]
  - NERVOUSNESS [None]
  - SOMNOLENCE [None]
  - TACHYCARDIA [None]
